FAERS Safety Report 10556416 (Version 3)
Quarter: 2014Q4

REPORT INFORMATION
  Report Type: Report from Study
  Country: FR (occurrence: FR)
  Receive Date: 20141031
  Receipt Date: 20141118
  Transmission Date: 20150529
  Serious: Yes (Hospitalization)
  Sender: FDA-Public Use
  Company Number: FR-BRISTOL-MYERS SQUIBB COMPANY-21516984

PATIENT
  Age: 51 Year
  Sex: Female
  Weight: 68.2 kg

DRUGS (1)
  1. SPRYCEL [Suspect]
     Active Substance: DASATINIB
     Indication: CHRONIC MYELOID LEUKAEMIA
     Dosage: DAILY DOSE: 100 UNITS: NOS
     Route: 048
     Dates: start: 20101006, end: 20140616

REACTIONS (1)
  - Uterine prolapse [Recovered/Resolved]

NARRATIVE: CASE EVENT DATE: 20141013
